FAERS Safety Report 9355571 (Version 1)
Quarter: 2013Q2

REPORT INFORMATION
  Report Type: Spontaneous
  Country: JP (occurrence: JP)
  Receive Date: 20130619
  Receipt Date: 20130619
  Transmission Date: 20140414
  Serious: Yes (Other)
  Sender: FDA-Public Use
  Company Number: JP-PFIZER INC-2013183770

PATIENT
  Age: 63 Year
  Sex: Female

DRUGS (1)
  1. GABAPEN [Suspect]
     Dosage: 200 MG X 1 TABLET
     Route: 048
     Dates: start: 201010, end: 201105

REACTIONS (3)
  - Epilepsy [Unknown]
  - Altered state of consciousness [Unknown]
  - Eating disorder [Unknown]
